FAERS Safety Report 4645167-5 (Version None)
Quarter: 2005Q2

REPORT INFORMATION
  Report Type: 
  Country: None (occurrence: None)
  Receive Date: 20050331
  Receipt Date: 20041203
  Transmission Date: 20051028
  Serious: No
  Sender: FDA-Public Use
  Company Number: 04P-163-0282178-00

PATIENT
  Age: 59 Year
  Sex: Male

DRUGS (5)
  1. HUMIRA [Suspect]
     Indication: RHEUMATOID ARTHRITIS
     Dosage: 40 MG, 1 IN 2 WK, SUBCUTANEOUS
     Route: 058
     Dates: start: 20030601
  2. CELECOXIB [Concomitant]
  3. ACTOS [Concomitant]
  4. CLOPIDOGREL BISULFATE [Concomitant]
  5. METHOTREXATE [Concomitant]

REACTIONS (1)
  - NASOPHARYNGITIS [None]
